FAERS Safety Report 7280559-X (Version None)
Quarter: 2011Q1

REPORT INFORMATION
  Report Type: 
  Country: None (occurrence: None)
  Receive Date: 20110131
  Receipt Date: 20110125
  Transmission Date: 20110831
  Serious: Yes (Hospitalization, Other)
  Sender: FDA-Public Use
  Company Number: 1000018510

PATIENT
  Age: 82 Year
  Sex: Female

DRUGS (10)
  1. REQUIP (ROPINIROLE HYDROCHLORIDE) (ROPINIROLE HYDROCHLORIDE) [Concomitant]
  2. LEXAPRO (ESCITALOPRAM OXALATE) (10 MILLIGRAM, TABLETS) TABLETS [Suspect]
     Indication: DEPRESSION
     Dosage: (10 MG,1 IN 1 D), ORAL
     Route: 048
     Dates: start: 20070101, end: 20110101
  3. ZETIA [Concomitant]
  4. WELLBUTRIN XL (BUPROPION HYDROCHLORIDE) (BUPROPION HYDROCHLORIDE) [Concomitant]
  5. CORED CR (CARVEDILOL)(CARVEDILOL) [Concomitant]
  6. ROZEREM (RAMELTEON) (RAMELTEON) [Concomitant]
  7. LISINOPRIL [Concomitant]
  8. THYROID META MAX (THYROID META MAX) (THYROID META MAX) [Concomitant]
  9. AVALIDE (IRBESARTAN, HYDROCHLOROTHIAZIDE) (IRBESARTAN, HYDROCHLOROTHIA [Concomitant]
  10. PROTONIX [Concomitant]

REACTIONS (10)
  - GASTROINTESTINAL HAEMORRHAGE [None]
  - AGGRESSION [None]
  - RENAL FAILURE CHRONIC [None]
  - INAPPROPRIATE ANTIDIURETIC HORMONE SECRETION [None]
  - PNEUMONIA [None]
  - CONFUSIONAL STATE [None]
  - NAUSEA [None]
  - VOMITING [None]
  - FALL [None]
  - ANAEMIA [None]
